FAERS Safety Report 8304950-5 (Version None)
Quarter: 2012Q2

REPORT INFORMATION
  Report Type: 
  Country: None (occurrence: None)
  Receive Date: 20120423
  Receipt Date: 20120417
  Transmission Date: 20120825
  Serious: Yes (Life-Threatening, Hospitalization)
  Sender: FDA-Public Use
  Company Number: JP-ASTRAZENECA-2011SE77678

PATIENT
  Age: 31840 Day
  Sex: Female

DRUGS (16)
  1. LASIX [Concomitant]
     Indication: CARDIAC FAILURE
     Route: 042
     Dates: start: 20110418, end: 20110422
  2. CARVEDILOL [Concomitant]
     Route: 048
     Dates: start: 20110530
  3. ASPIRIN [Suspect]
     Indication: ACUTE CORONARY SYNDROME
     Route: 048
     Dates: start: 20110408
  4. PRAVASTATIN SODIUM [Concomitant]
     Indication: HYPERLIPIDAEMIA
     Route: 048
  5. CARVEDILOL [Concomitant]
     Indication: CARDIAC FAILURE
     Route: 048
     Dates: start: 20110412, end: 20110422
  6. SIGMART [Concomitant]
     Route: 048
     Dates: start: 20110408
  7. LASIX [Concomitant]
     Route: 048
     Dates: start: 20110423
  8. CRESTOR [Concomitant]
     Indication: HYPERLIPIDAEMIA
     Route: 048
     Dates: start: 20110409
  9. LANSOPRAZOLE [Concomitant]
     Indication: GASTRITIS PROPHYLAXIS
     Route: 048
     Dates: start: 20110409
  10. PLACEBO [Suspect]
     Indication: ACUTE CORONARY SYNDROME
     Route: 048
     Dates: start: 20110408, end: 20111216
  11. DIOVAN [Concomitant]
     Indication: HYPERTENSION
     Route: 048
  12. AZD6140 [Suspect]
     Indication: ACUTE CORONARY SYNDROME
     Route: 048
     Dates: start: 20110408, end: 20111216
  13. CARVEDILOL [Concomitant]
     Route: 048
     Dates: start: 20110429, end: 20110530
  14. AMLODIPINE BESYLATE [Concomitant]
     Indication: HYPERTENSION
     Route: 048
  15. SIGMART [Concomitant]
     Indication: CARDIOVASCULAR EVENT PROPHYLAXIS
     Route: 042
     Dates: start: 20110408, end: 20110408
  16. CARVEDILOL [Concomitant]
     Route: 048
     Dates: start: 20110423, end: 20110428

REACTIONS (1)
  - SMALL INTESTINE ULCER [None]
